FAERS Safety Report 6921032-5 (Version None)
Quarter: 2010Q3

REPORT INFORMATION
  Report Type: 
  Country: None (occurrence: None)
  Receive Date: 20100812
  Receipt Date: 20100805
  Transmission Date: 20110219
  Serious: Yes (Hospitalization)
  Sender: FDA-Public Use
  Company Number: FR-PFIZER INC-2010098314

PATIENT
  Age: 75 Year
  Sex: Male

DRUGS (8)
  1. TAHOR [Suspect]
     Dosage: 1 DF, 1X/DAY
     Route: 048
     Dates: start: 20090501, end: 20100329
  2. INSULIN DETEMIR [Concomitant]
     Dosage: UNK
     Dates: start: 20100201
  3. NOVONORM [Concomitant]
     Dosage: UNK
     Dates: start: 20100201
  4. COAPROVEL [Concomitant]
     Dosage: UNK
     Dates: start: 20090501
  5. KARDEGIC [Concomitant]
     Dosage: UNK
     Dates: start: 20090501
  6. GLUCOPHAGE [Concomitant]
     Dosage: UNK
  7. PIASCLEDINE [Concomitant]
     Dosage: UNK
  8. LOPERAMIDE HYDROCHLORIDE [Concomitant]
     Dosage: UNK

REACTIONS (1)
  - PANCREATITIS ACUTE [None]
